FAERS Safety Report 4832464-3 (Version None)
Quarter: 2005Q4

REPORT INFORMATION
  Report Type: 
  Country: None (occurrence: None)
  Receive Date: 20051117
  Receipt Date: 20051103
  Transmission Date: 20060501
  Serious: Yes (Death, Hospitalization, Other)
  Sender: FDA-Public Use
  Company Number: 2005-DE-04557GD

PATIENT
  Age: 60 Year
  Sex: Female

DRUGS (4)
  1. HYDROMORPHONE (HYDROMORPHONE) [Suspect]
     Indication: ARTHRALGIA
     Dosage: SEE IMAGE
  2. HYDROMORPHONE (HYDROMORPHONE) [Suspect]
     Indication: BACK PAIN
     Dosage: SEE IMAGE
  3. METHADONE (METHADONE) [Suspect]
     Indication: ARTHRALGIA
     Dosage: SEE IMAGE
  4. METHADONE (METHADONE) [Suspect]
     Indication: BACK PAIN
     Dosage: SEE IMAGE

REACTIONS (17)
  - ABASIA [None]
  - ANXIETY [None]
  - BACK PAIN [None]
  - CONDITION AGGRAVATED [None]
  - DELIRIUM [None]
  - DEPRESSION [None]
  - DRUG INEFFECTIVE [None]
  - DYSPNOEA [None]
  - FATIGUE [None]
  - INADEQUATE ANALGESIA [None]
  - MALIGNANT NEOPLASM PROGRESSION [None]
  - MYOCLONUS [None]
  - PAIN [None]
  - PNEUMONIA [None]
  - POST PROCEDURAL COMPLICATION [None]
  - SOMNOLENCE [None]
  - SPINAL DEFORMITY [None]
